FAERS Safety Report 4359281-5 (Version None)
Quarter: 2004Q2

REPORT INFORMATION
  Report Type: 
  Country: None (occurrence: None)
  Receive Date: 20040512
  Receipt Date: 20040503
  Transmission Date: 20050107
  Serious: Yes (Life-Threatening, Hospitalization)
  Sender: FDA-Public Use
  Company Number: 206062

PATIENT
  Age: 52 Year
  Sex: Female
  Weight: 53.5 kg

DRUGS (12)
  1. XOLAIR (OMALIZUMAB) PWDER + SOLVENT, INJECTION, SOLN, 150MG [Suspect]
     Indication: ASTHMA
     Dosage: 150 MG, Q4W
     Dates: start: 20021201
  2. ALBUTEROL (ALBUTEROL, SULFATE, ALBUTEROL) [Concomitant]
  3. PREVACID [Concomitant]
  4. FLOVENT [Concomitant]
  5. ESTROGENIC HORM SUBSTANCES TAB [Concomitant]
  6. VICODIN [Concomitant]
  7. PREDNISONE [Concomitant]
  8. PROZAC [Concomitant]
  9. ZOFRAN [Concomitant]
  10. DIFLUCAN [Concomitant]
  11. SEREVENT DISKUS (SALMETEROL XINAFOATE) [Concomitant]
  12. OXYCONTIN [Concomitant]

REACTIONS (11)
  - ADRENAL INSUFFICIENCY [None]
  - BRONCHOPULMONARY ASPERGILLOSIS [None]
  - CHEST WALL PAIN [None]
  - CITROBACTER INFECTION [None]
  - DYSPNOEA [None]
  - HAEMOPTYSIS [None]
  - PRODUCTIVE COUGH [None]
  - PULMONARY CAVITATION [None]
  - SPUTUM CULTURE POSITIVE [None]
  - SPUTUM PURULENT [None]
  - WHEEZING [None]
